FAERS Safety Report 4475657-X (Version None)
Quarter: 2004Q4

REPORT INFORMATION
  Report Type: 
  Country: None (occurrence: None)
  Receive Date: 20041012
  Receipt Date: 20040928
  Transmission Date: 20050328
  Serious: Yes (Hospitalization)
  Sender: FDA-Public Use
  Company Number: 2004071987

PATIENT
  Sex: Female

DRUGS (2)
  1. LIPITOR [Suspect]
     Indication: DYSLIPIDAEMIA
     Dosage: ORAL
     Route: 048
     Dates: start: 20030901
  2. VALSARTAN (VALSARTAN) [Concomitant]

REACTIONS (3)
  - CONDITION AGGRAVATED [None]
  - JOINT DISLOCATION [None]
  - LOCALISED OSTEOARTHRITIS [None]
